FAERS Safety Report 19499643 (Version 1)
Quarter: 2021Q3

REPORT INFORMATION
  Report Type: Spontaneous
  Country: CA (occurrence: CA)
  Receive Date: 20210706
  Receipt Date: 20210706
  Transmission Date: 20211014
  Serious: Yes (Hospitalization)
  Sender: FDA-Public Use
  Company Number: CA-AMNEAL PHARMACEUTICALS-2021-AMRX-02630

PATIENT
  Age: 10 Year
  Sex: Male

DRUGS (11)
  1. HYDROCORTISONE. [Concomitant]
     Active Substance: HYDROCORTISONE
     Dosage: DOUBLE MAINTENANCE FOR 2 ADDITIONAL DAYS
     Route: 065
  2. HYDROMORPHONE [Suspect]
     Active Substance: HYDROMORPHONE
     Indication: FEMUR FRACTURE
     Dosage: 1 MILLIGRAM, EVERY 4HR PRN
     Route: 065
  3. DESMOPRESSIN [Concomitant]
     Active Substance: DESMOPRESSIN
     Dosage: 0.6 MILLIGRAM, PRN, FROM DAY 2?5
     Route: 065
  4. DESMOPRESSIN [Concomitant]
     Active Substance: DESMOPRESSIN
     Dosage: 0.5 MILLIGRAM, BID, FROM 6?14 DAYS
     Route: 065
  5. DESMOPRESSIN [Concomitant]
     Active Substance: DESMOPRESSIN
     Dosage: 3.4 MILLIGRAM, QD
     Route: 065
  6. HYDROCORTISONE. [Concomitant]
     Active Substance: HYDROCORTISONE
     Indication: DIABETES INSIPIDUS
     Dosage: 6 MILLIGRAM, 2 /DAY
     Route: 048
  7. DESMOPRESSIN [Concomitant]
     Active Substance: DESMOPRESSIN
     Dosage: 0.1 MILLIGRAM, PRN, FROM DAY 6?14
     Route: 065
  8. DESMOPRESSIN [Concomitant]
     Active Substance: DESMOPRESSIN
     Dosage: 10 MICROGRAM
     Route: 045
  9. HYDROCORTISONE. [Concomitant]
     Active Substance: HYDROCORTISONE
     Dosage: 15 MILLIGRAM, 3 /DAY, FOR 3 DAYS
     Route: 065
  10. IBUPROFEN. [Suspect]
     Active Substance: IBUPROFEN
     Indication: FEMUR FRACTURE
     Dosage: 600 MILLIGRAM, EVERY 6HR PRN
     Route: 065
  11. DESMOPRESSIN [Concomitant]
     Active Substance: DESMOPRESSIN
     Indication: DIABETES INSIPIDUS
     Dosage: 1.6 MILLIGRAM, 4 /DAY
     Route: 048

REACTIONS (4)
  - Apnoea [Unknown]
  - Hyponatraemia [Recovered/Resolved]
  - Unresponsive to stimuli [Unknown]
  - Seizure [Unknown]
